FAERS Safety Report 9295799 (Version 1)
Quarter: 2013Q2

REPORT INFORMATION
  Report Type: Spontaneous
  Country: AR (occurrence: AR)
  Receive Date: 20130517
  Receipt Date: 20130517
  Transmission Date: 20140414
  Serious: Yes (Hospitalization)
  Sender: FDA-Public Use
  Company Number: AR-PFIZER INC-2013147990

PATIENT
  Age: 42 Year
  Sex: Female

DRUGS (1)
  1. GENOTROPIN [Suspect]
     Indication: GROWTH HORMONE DEFICIENCY
     Dosage: ^+2MG/7XWEEK^
     Dates: start: 20110101

REACTIONS (5)
  - Blood potassium decreased [Recovering/Resolving]
  - Blood sodium decreased [Unknown]
  - Phlebitis [Not Recovered/Not Resolved]
  - Pain in extremity [Not Recovered/Not Resolved]
  - Malaise [Recovering/Resolving]
